FAERS Safety Report 8540594 (Version 2)
Quarter: 2014Q1

REPORT INFORMATION
  Report Type: Spontaneous
  Country: US (occurrence: US)
  Receive Date: 20120502
  Receipt Date: 20140131
  Transmission Date: 20141002
  Serious: Yes (Hospitalization)
  Sender: FDA-Public Use
  Company Number: US-US-EMD SERONO, INC.-7128233

PATIENT
  Age: 42 Year
  Sex: Male

DRUGS (3)
  1. REBIF [Suspect]
     Indication: MULTIPLE SCLEROSIS
     Route: 058
     Dates: start: 2004
  2. REBIF [Suspect]
     Route: 058
     Dates: start: 20050830
  3. HYDROCHLOROTHIAZIDE [Suspect]
     Indication: HYPERTENSION
     Dates: start: 2001

REACTIONS (13)
  - Paraesthesia [Unknown]
  - Blood phosphorus decreased [Unknown]
  - Blood potassium decreased [Unknown]
  - Injection site abscess [Unknown]
  - Intervertebral disc degeneration [Unknown]
  - Intervertebral disc protrusion [Unknown]
  - Vertigo [Unknown]
  - Burning sensation [Unknown]
  - Muscular weakness [Unknown]
  - Neck pain [Unknown]
  - Paraesthesia [Unknown]
  - Injection site cellulitis [Unknown]
  - Injection site reaction [Unknown]
